FAERS Safety Report 9768813 (Version 2)
Quarter: 2018Q1

REPORT INFORMATION
  Report Type: Report from Study
  Country: US (occurrence: US)
  Receive Date: 20131218
  Receipt Date: 20180310
  Transmission Date: 20180509
  Serious: Yes (Hospitalization, Other)
  Sender: FDA-Public Use
  Company Number: US-ROCHE-1319383

PATIENT
  Age: 3 Year
  Sex: Female
  Weight: 12.27 kg

DRUGS (3)
  1. NUTROPIN AQ [Suspect]
     Active Substance: SOMATROPIN
     Indication: TURNER^S SYNDROME
     Dosage: NUSPIN 5 MG/2 ML
     Route: 058
     Dates: start: 201106
  2. NUTROPIN AQ [Suspect]
     Active Substance: SOMATROPIN
     Indication: BODY HEIGHT BELOW NORMAL
     Route: 058
  3. NUTROPIN AQ [Suspect]
     Active Substance: SOMATROPIN
     Route: 058

REACTIONS (9)
  - Abdominal pain [Unknown]
  - Nausea [Not Recovered/Not Resolved]
  - Headache [Unknown]
  - Upper respiratory tract infection [Unknown]
  - Pallor [Unknown]
  - Hypertension [Unknown]
  - Abdominal migraine [Unknown]
  - Vomiting [Unknown]
  - Dehydration [Unknown]

NARRATIVE: CASE EVENT DATE: 2013
